FAERS Safety Report 13418780 (Version 7)
Quarter: 2018Q1

REPORT INFORMATION
  Report Type: Report from Study
  Country: BR (occurrence: BR)
  Receive Date: 20170406
  Receipt Date: 20180314
  Transmission Date: 20180508
  Serious: Yes (Life-Threatening, Hospitalization, Other)
  Sender: FDA-Public Use
  Company Number: PHHY2017BR048518

PATIENT
  Sex: Female
  Weight: 38 kg

DRUGS (10)
  1. EXJADE [Suspect]
     Active Substance: DEFERASIROX
     Dosage: 1 DF, QD (250 MG)
     Route: 048
     Dates: start: 2015
  2. EXJADE [Suspect]
     Active Substance: DEFERASIROX
     Indication: SICKLE CELL ANAEMIA
     Dosage: 250 MG, QOD
     Route: 048
     Dates: start: 2005
  3. AAS [Concomitant]
     Active Substance: ASPIRIN
     Indication: PROPHYLAXIS
     Dosage: LONG TIME
     Route: 065
  4. ERYTHROPOIETIN [Concomitant]
     Active Substance: ERYTHROPOIETIN
     Indication: RENAL CYST
     Dosage: 1 DF, MONDAY, WEDNESDAY, FRIDAY
     Route: 065
     Dates: start: 2005
  5. LOSARTAN. [Concomitant]
     Active Substance: LOSARTAN
     Indication: BLOOD PRESSURE INCREASED
     Dosage: 2 DF, QD (LONG TIME)
     Route: 048
     Dates: start: 2005
  6. AMLODIPINE [Concomitant]
     Active Substance: AMLODIPINE BESYLATE
     Indication: BLOOD PRESSURE INCREASED
     Dosage: 2 DF, QD
     Route: 048
     Dates: start: 2005
  7. EXJADE [Suspect]
     Active Substance: DEFERASIROX
     Dosage: 1 DF (500, MG), QOD
     Route: 048
  8. OMEPRAZOLE. [Concomitant]
     Active Substance: OMEPRAZOLE
     Indication: PRODUCT USED FOR UNKNOWN INDICATION
     Route: 065
  9. HIDROXIUREA [Concomitant]
     Active Substance: HYDROXYUREA
     Indication: SICKLE CELL ANAEMIA
     Dosage: 2 DF, QD
     Route: 048
     Dates: start: 2004
  10. ATENOLOL. [Concomitant]
     Active Substance: ATENOLOL
     Indication: BLOOD PRESSURE INCREASED
     Dosage: 2 DF, QD
     Route: 048
     Dates: start: 2005

REACTIONS (35)
  - Pneumonia [Unknown]
  - Feeling abnormal [Unknown]
  - Swelling [Not Recovered/Not Resolved]
  - Malaise [Unknown]
  - Anaemia [Unknown]
  - Dyspepsia [Unknown]
  - Renal colic [Unknown]
  - Abdominal distension [Recovering/Resolving]
  - Nephropathy [Unknown]
  - Incorrect drug administration duration [Unknown]
  - Cerebrovascular accident [Recovered/Resolved]
  - Nausea [Not Recovered/Not Resolved]
  - Liver disorder [Unknown]
  - Feeding disorder [Unknown]
  - Pain [Not Recovered/Not Resolved]
  - Back pain [Unknown]
  - Dry skin [Not Recovered/Not Resolved]
  - Abdominal pain [Not Recovered/Not Resolved]
  - Malaise [Recovered/Resolved]
  - Asthenia [Unknown]
  - Renal pain [Unknown]
  - Dizziness [Unknown]
  - Constipation [Unknown]
  - Liver function test abnormal [Unknown]
  - Serum ferritin increased [Unknown]
  - Reflux gastritis [Unknown]
  - Hepatic failure [Unknown]
  - Influenza [Not Recovered/Not Resolved]
  - Weight decreased [Not Recovered/Not Resolved]
  - Cough [Not Recovered/Not Resolved]
  - Vomiting [Not Recovered/Not Resolved]
  - Gait disturbance [Unknown]
  - Renal cyst [Unknown]
  - Dysmenorrhoea [Unknown]
  - Abdominal pain upper [Unknown]

NARRATIVE: CASE EVENT DATE: 2007
